FAERS Safety Report 20014146 (Version 1)
Quarter: 2021Q4

REPORT INFORMATION
  Report Type: Spontaneous
  Country: US (occurrence: US)
  Receive Date: 20211029
  Receipt Date: 20211029
  Transmission Date: 20220303
  Serious: No
  Sender: FDA-Public Use
  Company Number: US-HORIZON THERAPEUTICS-HZN-2021-006503

PATIENT
  Sex: Female

DRUGS (3)
  1. TEPEZZA [Suspect]
     Active Substance: TEPROTUMUMAB-TRBW
     Dosage: UNK
     Route: 065
     Dates: start: 20210726
  2. CEFIXIME [Concomitant]
     Active Substance: CEFIXIME
     Indication: Product used for unknown indication
  3. ZOFRAN [Concomitant]
     Active Substance: ONDANSETRON HYDROCHLORIDE
     Indication: Product used for unknown indication

REACTIONS (4)
  - Abdominal pain upper [Unknown]
  - Photosensitivity reaction [Not Recovered/Not Resolved]
  - Headache [Unknown]
  - Muscle spasms [Unknown]
